FAERS Safety Report 20073683 (Version 1)
Quarter: 2021Q4

REPORT INFORMATION
  Report Type: Spontaneous
  Country: US (occurrence: US)
  Receive Date: 20211116
  Receipt Date: 20211116
  Transmission Date: 20220303
  Serious: No
  Sender: FDA-Public Use
  Company Number: US-CHIESI-2021CHF03350

PATIENT
  Sex: Female
  Weight: 78 kg

DRUGS (5)
  1. FERRIPROX [Suspect]
     Active Substance: DEFERIPRONE
     Indication: Aplastic anaemia
     Dosage: 1000 MILLIGRAM, TID
     Route: 048
     Dates: start: 20200915
  2. FERRIPROX [Suspect]
     Active Substance: DEFERIPRONE
     Indication: Haemochromatosis
     Dosage: UNK
     Dates: start: 20200508
  3. FERRIPROX [Suspect]
     Active Substance: DEFERIPRONE
     Indication: Transfusion
  4. CYCLOSPORINE [Concomitant]
     Active Substance: CYCLOSPORINE
     Indication: Product used for unknown indication
     Dosage: UNK
  5. SOLIRIS [Concomitant]
     Active Substance: ECULIZUMAB
     Indication: Product used for unknown indication
     Dosage: UNK

REACTIONS (1)
  - Loss of personal independence in daily activities [Unknown]
